FAERS Safety Report 5329022-3 (Version None)
Quarter: 2007Q2

REPORT INFORMATION
  Report Type: 
  Country: None (occurrence: None)
  Receive Date: 20070518
  Receipt Date: 20070509
  Transmission Date: 20071010
  Serious: Yes (Other)
  Sender: FDA-Public Use
  Company Number: US-PFIZER INC-2004018273

PATIENT
  Sex: Male
  Weight: 80.7 kg

DRUGS (7)
  1. VIAGRA [Suspect]
     Indication: ERECTILE DYSFUNCTION
     Route: 048
     Dates: start: 19980420, end: 20020601
  2. VITAMIN CAP [Concomitant]
  3. ASCORBIC ACID [Concomitant]
  4. ASPIRIN [Concomitant]
     Route: 065
  5. LIPITOR [Concomitant]
     Route: 065
  6. MONOPRIL [Concomitant]
     Route: 065
  7. DIURETICS [Concomitant]
     Route: 065

REACTIONS (16)
  - BENIGN PROSTATIC HYPERPLASIA [None]
  - CAROTID ARTERY DISEASE [None]
  - CATARACT [None]
  - CEREBELLAR ATROPHY [None]
  - CEREBRAL ATROPHY [None]
  - CEREBRAL ISCHAEMIA [None]
  - DRY SKIN [None]
  - HEADACHE [None]
  - KERATOCONJUNCTIVITIS SICCA [None]
  - OPTIC ATROPHY [None]
  - OPTIC ISCHAEMIC NEUROPATHY [None]
  - PUPILLARY REFLEX IMPAIRED [None]
  - RETINAL ARTERY EMBOLISM [None]
  - RETINAL HAEMORRHAGE [None]
  - VISUAL ACUITY REDUCED [None]
  - VITREOUS DETACHMENT [None]
